FAERS Safety Report 4737300-1 (Version None)
Quarter: 2005Q3

REPORT INFORMATION
  Report Type: 
  Country: None (occurrence: None)
  Receive Date: 20050728
  Receipt Date: 20050517
  Transmission Date: 20060218
  Serious: No
  Sender: FDA-Public Use
  Company Number: 200512641US

PATIENT
  Age: 56 Year
  Sex: Female
  Weight: 60 kg

DRUGS (5)
  1. KETEK [Suspect]
     Indication: SINUSITIS
     Dosage: 800 MG/DAY
     Dates: start: 20050326
  2. ATENOLOL [Concomitant]
  3. PREVACID [Concomitant]
  4. ACTONEL [Concomitant]
  5. VITAMINS [Concomitant]

REACTIONS (1)
  - HYPERTENSION [None]
